FAERS Safety Report 20098156 (Version 1)
Quarter: 2021Q4

REPORT INFORMATION
  Report Type: Spontaneous
  Country: CN (occurrence: CN)
  Receive Date: 20211122
  Receipt Date: 20211122
  Transmission Date: 20220303
  Serious: Yes (Hospitalization, Other)
  Sender: FDA-Public Use
  Company Number: CN-PFIZER INC-202101549289

PATIENT
  Age: 74 Year
  Sex: Female
  Weight: 63 kg

DRUGS (4)
  1. GLIPIZIDE [Suspect]
     Active Substance: GLIPIZIDE
     Indication: Diabetes mellitus
     Dosage: 5 MG, 1X/DAY
     Route: 048
     Dates: start: 20211015, end: 20211102
  2. REPAGLINIDE [Suspect]
     Active Substance: REPAGLINIDE
     Indication: Diabetes mellitus
     Dosage: 2 MG, 2X/DAY
     Route: 048
     Dates: start: 20211015, end: 20211102
  3. METFORMIN HYDROCHLORIDE [Suspect]
     Active Substance: METFORMIN HYDROCHLORIDE
     Indication: Diabetes mellitus
     Dosage: 1 G, 2X/DAY
     Route: 048
     Dates: start: 20211015, end: 20211102
  4. LOSARTAN POTASSIUM [Concomitant]
     Active Substance: LOSARTAN POTASSIUM
     Indication: Hypertension
     Dosage: 100 MG, 1X/DAY
     Route: 048
     Dates: start: 20211015, end: 20211102

REACTIONS (5)
  - Hypoglycaemic coma [Recovered/Resolved]
  - Hypokalaemia [Unknown]
  - Pneumonia [Unknown]
  - Anaemia [Unknown]
  - Neutrophil percentage increased [Unknown]

NARRATIVE: CASE EVENT DATE: 20211102
